FAERS Safety Report 5247937-1 (Version None)
Quarter: 2007Q1

REPORT INFORMATION
  Report Type: 
  Country: None (occurrence: None)
  Receive Date: 20070220
  Receipt Date: 20070205
  Transmission Date: 20070707
  Serious: Yes (Hospitalization)
  Sender: FDA-Public Use
  Company Number: CERZ-11496

PATIENT
  Age: 56 Year
  Sex: Male
  Weight: 85.5 kg

DRUGS (6)
  1. CEREZYME [Suspect]
     Indication: GAUCHER'S DISEASE
     Dosage: 2500 UNITS Q3WKS IV
     Route: 042
     Dates: start: 19970430
  2. VANCOMYCIN HYDROCHLORIDE [Suspect]
     Indication: STAPHYLOCOCCAL INFECTION
     Dates: start: 20070101, end: 20070101
  3. PERCOCET [Concomitant]
  4. ATENOLOL [Concomitant]
  5. BUSPAR [Concomitant]
  6. FOSAMAX [Concomitant]

REACTIONS (3)
  - OSTEONECROSIS [None]
  - RASH [None]
  - STAPHYLOCOCCAL SKIN INFECTION [None]
